FAERS Safety Report 8377725-9 (Version None)
Quarter: 2012Q2

REPORT INFORMATION
  Report Type: 
  Country: None (occurrence: None)
  Receive Date: 20120522
  Receipt Date: 20120514
  Transmission Date: 20120825
  Serious: Yes (Hospitalization)
  Sender: FDA-Public Use
  Company Number: JP-GLAXOSMITHKLINE-B0798334A

PATIENT
  Age: 63 Year
  Sex: Female
  Weight: 47 kg

DRUGS (2)
  1. VALTREX [Suspect]
     Indication: ENCEPHALITIS VIRAL
     Route: 048
     Dates: start: 20110101, end: 20110101
  2. ACYCLOVIR [Concomitant]
     Route: 065

REACTIONS (11)
  - ALTERED STATE OF CONSCIOUSNESS [None]
  - GROIN PAIN [None]
  - JOINT RANGE OF MOTION DECREASED [None]
  - DYSLALIA [None]
  - DYSARTHRIA [None]
  - ENCEPHALOPATHY [None]
  - RASH [None]
  - PLEURAL EFFUSION [None]
  - CONVULSION [None]
  - FEMUR FRACTURE [None]
  - SCAB [None]
